FAERS Safety Report 9376098 (Version 1)
Quarter: 2013Q2

REPORT INFORMATION
  Report Type: Spontaneous
  Country: US (occurrence: None)
  Receive Date: 20130628
  Receipt Date: 20130628
  Transmission Date: 20140414
  Serious: Yes (Hospitalization, Disabling, Other)
  Sender: FDA-Public Use
  Company Number: None

PATIENT
  Age: 78 Year
  Sex: Female
  Weight: 65.77 kg

DRUGS (5)
  1. PROLIA [Suspect]
     Indication: OSTEOPOROSIS
     Dosage: ??1 INJECTION?EVERY 6 MO.?INJECTION
     Dates: start: 20130531, end: 20130531
  2. BABY ASPIRIN [Concomitant]
  3. CALCIUM [Concomitant]
  4. VIT D [Concomitant]
  5. FISH OIL [Concomitant]

REACTIONS (9)
  - Influenza like illness [None]
  - Chills [None]
  - Vision blurred [None]
  - Visual impairment [None]
  - Disorientation [None]
  - Cerebrovascular accident [None]
  - Blood cholesterol increased [None]
  - Urinary tract infection [None]
  - Nausea [None]
